FAERS Safety Report 5152191-5 (Version None)
Quarter: 2006Q4

REPORT INFORMATION
  Report Type: 
  Country: None (occurrence: None)
  Receive Date: 20061116
  Receipt Date: 20061109
  Transmission Date: 20070319
  Serious: Yes (Other)
  Sender: FDA-Public Use
  Company Number: CH-GLAXOSMITHKLINE-B0446664A

PATIENT
  Age: 66 Year
  Sex: Female

DRUGS (1)
  1. DEROXAT [Suspect]
     Indication: MENTAL DISORDER
     Route: 048
     Dates: start: 20060323, end: 20060713

REACTIONS (1)
  - CONJUNCTIVAL HAEMORRHAGE [None]
